FAERS Safety Report 7313231-8 (Version None)
Quarter: 2011Q1

REPORT INFORMATION
  Report Type: 
  Country: None (occurrence: None)
  Receive Date: 20110225
  Receipt Date: 20110216
  Transmission Date: 20110831
  Serious: Yes (Other)
  Sender: FDA-Public Use
  Company Number: US-JNJFOC-20110205226

PATIENT
  Sex: Female
  Weight: 76.66 kg

DRUGS (9)
  1. DURAGESIC-50 [Suspect]
     Indication: NEURALGIA
     Route: 062
  2. LEVOTHYROXINE SODIUM [Concomitant]
     Indication: THYROID DISORDER
     Route: 048
  3. HYOMAX [Concomitant]
     Indication: IRRITABLE BOWEL SYNDROME
     Route: 048
  4. ATENOLOL [Concomitant]
     Indication: PALPITATIONS
     Route: 048
  5. CYMBALTA [Concomitant]
     Indication: DEPRESSION
     Route: 048
  6. GABAPENTIN [Concomitant]
     Indication: NEURALGIA
     Route: 048
  7. CYMBALTA [Concomitant]
     Indication: PAIN
     Route: 048
  8. ESTRADIOL [Concomitant]
     Indication: HORMONE REPLACEMENT THERAPY
     Route: 048
  9. DURAGESIC-50 [Suspect]
     Indication: FIBROMYALGIA
     Route: 062

REACTIONS (7)
  - POLYMYALGIA RHEUMATICA [None]
  - APPLICATION SITE PRURITUS [None]
  - ABNORMAL LOSS OF WEIGHT [None]
  - TEMPORAL ARTERITIS [None]
  - APPLICATION SITE REACTION [None]
  - NAUSEA [None]
  - PRODUCT ADHESION ISSUE [None]
